FAERS Safety Report 19715330 (Version 1)
Quarter: 2021Q3

REPORT INFORMATION
  Report Type: Spontaneous
  Country: DE (occurrence: DE)
  Receive Date: 20210818
  Receipt Date: 20210818
  Transmission Date: 20211014
  Serious: Yes (Hospitalization)
  Sender: FDA-Public Use
  Company Number: DE-PFIZER INC-202100987902

PATIENT
  Age: 66 Year
  Sex: Female

DRUGS (4)
  1. AMLODIPINE BESILATE [Suspect]
     Active Substance: AMLODIPINE BESYLATE
     Dosage: 5 MG, 1?0?0?0
     Route: 048
  2. RAMIPRIL. [Suspect]
     Active Substance: RAMIPRIL
     Dosage: 5 MG, 2X/DAY (12 H) 1?0?1?0
     Route: 048
  3. SIMVASTATIN. [Concomitant]
     Active Substance: SIMVASTATIN
     Dosage: 20 MG, 0?0?1?0, TABLETS
     Route: 048
  4. ETORICOXIB. [Suspect]
     Active Substance: ETORICOXIB
     Dosage: 120 MG, 0?1?0?0
     Route: 048

REACTIONS (3)
  - Nausea [Unknown]
  - Dizziness [Unknown]
  - Hypertension [Unknown]
